FAERS Safety Report 4918657-5 (Version None)
Quarter: 2006Q1

REPORT INFORMATION
  Report Type: 
  Country: None (occurrence: None)
  Receive Date: 20060221
  Receipt Date: 20060221
  Transmission Date: 20060701
  Serious: No
  Sender: FDA-Public Use
  Company Number: None

PATIENT
  Sex: Female
  Weight: 27.2158 kg

DRUGS (1)
  1. OCTAGAM [Suspect]
     Indication: DERMATOMYOSITIS
     Dosage: 40 GRAMS Q 6-8 WKS PIV
     Route: 042
     Dates: start: 20060205

REACTIONS (9)
  - COUGH [None]
  - DECREASED APPETITE [None]
  - DYSPHONIA [None]
  - FATIGUE [None]
  - HEART RATE INCREASED [None]
  - HYPOTENSION [None]
  - INFUSION RELATED REACTION [None]
  - PALLOR [None]
  - THROAT TIGHTNESS [None]
